FAERS Safety Report 4492822-6 (Version None)
Quarter: 2004Q4

REPORT INFORMATION
  Report Type: 
  Country: None (occurrence: None)
  Receive Date: 20041103
  Receipt Date: 20041021
  Transmission Date: 20050328
  Serious: Yes (Death, Hospitalization)
  Sender: FDA-Public Use
  Company Number: 2004UW12532

PATIENT
  Age: 59 Year
  Sex: Male

DRUGS (10)
  1. CRESTOR [Suspect]
     Indication: BLOOD CHOLESTEROL INCREASED
     Dosage: 10 MG QD PO
     Route: 048
     Dates: start: 20030912, end: 20040301
  2. FUROSEMIDE [Concomitant]
  3. OMEPRAZOLE [Concomitant]
  4. SPIRONOLACTONE [Concomitant]
  5. DOMPERIDONE [Concomitant]
  6. PREDNISONE [Concomitant]
  7. LACTULOSE [Concomitant]
  8. CALCIUM [Concomitant]
  9. VITAMIN K [Concomitant]
  10. MULTI-VITAMINS [Concomitant]

REACTIONS (21)
  - ANAEMIA [None]
  - ASCITES [None]
  - ATHEROSCLEROSIS [None]
  - ELECTROCARDIOGRAM CHANGE [None]
  - GASTROINTESTINAL HAEMORRHAGE [None]
  - GENERAL PHYSICAL HEALTH DETERIORATION [None]
  - HEART INJURY [None]
  - HEPATIC CIRRHOSIS [None]
  - HEPATIC FAILURE [None]
  - HEPATIC STEATOSIS [None]
  - HEPATITIS ACUTE [None]
  - MYOCARDIAC ABSCESS [None]
  - MYOCARDIAL ISCHAEMIA [None]
  - OESOPHAGEAL VARICES HAEMORRHAGE [None]
  - PLEURAL EFFUSION [None]
  - PYELONEPHRITIS [None]
  - RENAL ABSCESS [None]
  - STAPHYLOCOCCAL SEPSIS [None]
  - THERAPY NON-RESPONDER [None]
  - TREMOR [None]
  - TROPONIN INCREASED [None]
